FAERS Safety Report 8162555-3 (Version None)
Quarter: 2012Q1

REPORT INFORMATION
  Report Type: 
  Country: None (occurrence: None)
  Receive Date: 20120224
  Receipt Date: 20120222
  Transmission Date: 20120608
  Serious: Yes (Other)
  Sender: FDA-Public Use
  Company Number: US-PFIZER INC-2012047619

PATIENT
  Sex: Male

DRUGS (1)
  1. CHANTIX [Suspect]
     Dosage: UNK

REACTIONS (6)
  - BRAIN INJURY [None]
  - ROAD TRAFFIC ACCIDENT [None]
  - GASTROINTESTINAL DISORDER [None]
  - VOCAL CORD DISORDER [None]
  - MEMORY IMPAIRMENT [None]
  - DEPRESSION [None]
